FAERS Safety Report 15980198 (Version 1)
Quarter: 2019Q1

REPORT INFORMATION
  Report Type: Spontaneous
  Country: GB (occurrence: GB)
  Receive Date: 20190219
  Receipt Date: 20190219
  Transmission Date: 20190418
  Serious: Yes (Other)
  Sender: FDA-Public Use
  Company Number: GB-ASTRAZENECA-2019SE25680

PATIENT
  Age: 65 Year
  Sex: Male
  Weight: 101 kg

DRUGS (8)
  1. SYMBICORT [Concomitant]
     Active Substance: BUDESONIDE\FORMOTEROL FUMARATE DIHYDRATE
     Dosage: PUFFS, 4 DF DAILY
     Dates: start: 20170313
  2. SITAGLIPTIN [Concomitant]
     Active Substance: SITAGLIPTIN
     Dates: start: 20190130
  3. METFORMIN [Concomitant]
     Active Substance: METFORMIN HYDROCHLORIDE
     Dates: start: 20170323
  4. IPRATROPIUM BROMIDE. [Concomitant]
     Active Substance: IPRATROPIUM BROMIDE
     Dosage: USE AS DIRECTED
     Dates: start: 20170421
  5. DAPAGLIFLOZIN. [Suspect]
     Active Substance: DAPAGLIFLOZIN
     Route: 048
     Dates: start: 20180620, end: 20190130
  6. SERTRALINE [Concomitant]
     Active Substance: SERTRALINE HYDROCHLORIDE
     Dates: start: 20180919
  7. PREDNISOLONE. [Concomitant]
     Active Substance: PREDNISOLONE
     Dosage: FOR 5 DAYS, ALWAYS AFTER FOOD, 8 DF DAILY
     Dates: start: 20151016
  8. SALBUTAMOL [Concomitant]
     Active Substance: ALBUTEROL
     Dosage: 1 DOSE 3-4 TIMES/DAY
     Route: 055
     Dates: start: 20190102, end: 20190104

REACTIONS (2)
  - Malaise [Recovered/Resolved]
  - Diarrhoea [Recovered/Resolved]
